FAERS Safety Report 4978530-3 (Version None)
Quarter: 2006Q1

REPORT INFORMATION
  Report Type: 
  Country: None (occurrence: None)
  Receive Date: 20060227
  Receipt Date: 20050204
  Transmission Date: 20060701
  Serious: Yes (Life-Threatening, Hospitalization)
  Sender: FDA-Public Use
  Company Number: WAES 0502USA00627

PATIENT
  Age: 45 Year
  Sex: Male

DRUGS (6)
  1. ZOCOR [Suspect]
     Dosage: 80 MG/DAILY/PO
     Route: 048
     Dates: start: 20030101, end: 20050127
  2. ACIPHEX [Concomitant]
  3. HYDRODIURIL [Concomitant]
  4. PRINIVIL [Concomitant]
  5. REGLAN [Concomitant]
  6. METOPROLOL [Concomitant]

REACTIONS (5)
  - ALANINE AMINOTRANSFERASE INCREASED [None]
  - ASPARTATE AMINOTRANSFERASE INCREASED [None]
  - BLOOD BICARBONATE INCREASED [None]
  - RENAL IMPAIRMENT [None]
  - RHABDOMYOLYSIS [None]
